FAERS Safety Report 9518737 (Version 2)
Quarter: 2013Q3

REPORT INFORMATION
  Report Type: Report from Study
  Country: DE (occurrence: DE)
  Receive Date: 20130912
  Receipt Date: 20130912
  Transmission Date: 20140515
  Serious: Yes (Death, Hospitalization, Other)
  Sender: FDA-Public Use
  Company Number: DE-ASTELLAS-2013EU005737

PATIENT
  Age: 65 Year
  Sex: Male
  Weight: 51.4 kg

DRUGS (20)
  1. TACROLIMUS MR4 CAPSULES [Suspect]
     Indication: RENAL TRANSPLANT
     Dosage: 9 MG, UID/QD
     Route: 048
     Dates: start: 20110311
  2. TACROLIMUS MR4 CAPSULES [Suspect]
     Dosage: 9 MG, UNKNOWN/D
     Route: 065
     Dates: start: 20110531, end: 20110801
  3. TACROLIMUS MR4 CAPSULES [Suspect]
     Dosage: 7 MG, UNKNOWN/D
     Route: 048
     Dates: start: 20110802, end: 20110807
  4. CELLCEPT /01275102/ [Suspect]
     Indication: RENAL TRANSPLANT
     Dosage: 250 MG, BID
     Route: 048
     Dates: start: 20110311
  5. CELLCEPT /01275102/ [Suspect]
     Dosage: 250 MG, BID
     Route: 048
     Dates: end: 20110719
  6. PREDNISOLONE [Suspect]
     Indication: RENAL TRANSPLANT
     Dosage: 25 MG, UID/QD
     Route: 048
     Dates: start: 20110311
  7. THYMOGLOBULINE [Suspect]
     Indication: RENAL TRANSPLANT
     Dosage: 600 MG, UID/QD
     Route: 048
     Dates: start: 20110311
  8. PHENPROCOUMON [Suspect]
     Dosage: UNK
     Route: 065
  9. BASILIXIMAB [Suspect]
     Indication: RENAL TRANSPLANT
     Dosage: 600 MG, UID/QD
     Dates: start: 20110311
  10. CYCLOSPORINE [Suspect]
     Indication: PRODUCT USED FOR UNKNOWN INDICATION
     Dosage: UNK
     Route: 065
  11. COTRIM FORTE [Concomitant]
     Dosage: 960 MG, UNKNOWN/D
     Route: 065
     Dates: start: 20110312, end: 20110805
  12. VALCYTE [Concomitant]
     Dosage: 450 MG, UNKNOWN/D
     Route: 065
     Dates: start: 20110312, end: 20110717
  13. EUNERPAN [Concomitant]
     Dosage: 50 MG, UNKNOWN/D
     Route: 065
     Dates: start: 20110508, end: 20110810
  14. NEPHROTRANS [Concomitant]
     Dosage: 1500 MG, UNKNOWN/D
     Route: 065
     Dates: start: 20110601
  15. ASS [Concomitant]
     Dosage: 100 MG, UNKNOWN/D
     Route: 065
     Dates: start: 20110527
  16. PANTOZOL                           /01263204/ [Concomitant]
     Dosage: 40 MG, UNKNOWN/D
     Route: 065
     Dates: start: 20110313
  17. LASIX                              /00032601/ [Concomitant]
     Dosage: 40 MG, UNKNOWN/D
     Route: 065
     Dates: start: 20110530, end: 20110623
  18. XIPAMID [Concomitant]
     Dosage: 20 MG, UNKNOWN/D
     Route: 065
     Dates: start: 20110530
  19. AMPHOTERICIN B [Concomitant]
     Dosage: 4 DF, UNKNOWN/D
     Route: 065
  20. PANTOZOL                           /01263204/ [Concomitant]
     Dosage: 40 MG, UNKNOWN/D
     Route: 065
     Dates: start: 20110313

REACTIONS (10)
  - General physical health deterioration [Fatal]
  - Pneumonia [Fatal]
  - Sepsis [Fatal]
  - General physical health deterioration [Recovered/Resolved]
  - Complications of transplanted kidney [Not Recovered/Not Resolved]
  - Bone marrow toxicity [Unknown]
  - Inferior vena caval occlusion [Unknown]
  - Urinary tract infection bacterial [Unknown]
  - Peripheral arterial occlusive disease [Not Recovered/Not Resolved]
  - Thrombocytopenia [Not Recovered/Not Resolved]
